FAERS Safety Report 5853910-2 (Version None)
Quarter: 2008Q3

REPORT INFORMATION
  Report Type: 
  Country: None (occurrence: None)
  Receive Date: 20080822
  Receipt Date: 20080815
  Transmission Date: 20090109
  Serious: Yes (Other)
  Sender: FDA-Public Use
  Company Number: A0743806A

PATIENT
  Age: 2 Year
  Sex: Male
  Weight: 45 kg

DRUGS (5)
  1. SERETIDE [Suspect]
     Dates: start: 20050113
  2. PREDNISOLONE [Concomitant]
     Dates: start: 20050113
  3. BEROTEC [Concomitant]
     Dates: start: 20050113
  4. ATROVENT [Concomitant]
  5. UNKNOWN MEDICATION [Concomitant]
     Dates: start: 20050113

REACTIONS (4)
  - DRUG INEFFECTIVE [None]
  - PNEUMONIA [None]
  - SINUSITIS [None]
  - WEIGHT INCREASED [None]
